FAERS Safety Report 9023810 (Version 2)
Quarter: 2013Q1

REPORT INFORMATION
  Report Type: Spontaneous
  Country: US (occurrence: US)
  Receive Date: 20130121
  Receipt Date: 20130221
  Transmission Date: 20140127
  Serious: Yes (Hospitalization)
  Sender: FDA-Public Use
  Company Number: US-ELI_LILLY_AND_COMPANY-US201301002969

PATIENT
  Age: 82 None
  Sex: Female

DRUGS (8)
  1. FORTEO [Suspect]
     Indication: OSTEOPOROSIS
     Dosage: 20 UG, QD
     Dates: start: 20121117, end: 20121212
  2. PREDNISONE [Concomitant]
  3. OMEPRAZOLE [Concomitant]
  4. CALCIUM [Concomitant]
  5. VITAMIN D [Concomitant]
  6. MULTIVITAMINS [Concomitant]
  7. FISH OIL [Concomitant]
  8. VITAMIN C [Concomitant]

REACTIONS (2)
  - Malignant melanoma [Unknown]
  - Blood pressure orthostatic decreased [Recovered/Resolved]
